FAERS Safety Report 5633102-2 (Version None)
Quarter: 2008Q1

REPORT INFORMATION
  Report Type: 
  Country: None (occurrence: None)
  Receive Date: 20080221
  Receipt Date: 20080211
  Transmission Date: 20080703
  Serious: Yes (Death, Hospitalization)
  Sender: FDA-Public Use
  Company Number: ES-AVENTIS-200811470GDDC

PATIENT
  Age: 51 Year
  Sex: Female

DRUGS (7)
  1. FLUOROURACIL [Suspect]
     Indication: BREAST CANCER
     Dosage: DOSE: UNK
  2. EPIRUBICIN [Suspect]
     Indication: BREAST CANCER
     Dosage: DOSE: UNK
  3. CYCLOPHOSPHAMIDE [Suspect]
     Indication: BREAST CANCER
     Dosage: DOSE: UNK
  4. ANTIBIOTICS [Concomitant]
     Indication: MASTITIS
     Dosage: DOSE: UNK
  5. VIDEX [Concomitant]
     Dosage: DOSE: UNK
  6. VIREAD [Concomitant]
     Dosage: DOSE: UNK
  7. KALETRA [Concomitant]
     Dosage: DOSE: UNK

REACTIONS (4)
  - DIARRHOEA [None]
  - INTESTINAL ULCER [None]
  - NEUTROPENIA [None]
  - PSEUDOMEMBRANOUS COLITIS [None]
